FAERS Safety Report 16860919 (Version 1)
Quarter: 2019Q3

REPORT INFORMATION
  Report Type: Spontaneous
  Country: FR (occurrence: FR)
  Receive Date: 20190927
  Receipt Date: 20190927
  Transmission Date: 20191005
  Serious: Yes (Hospitalization, Other)
  Sender: FDA-Public Use
  Company Number: FR-BION-008264

PATIENT
  Age: 49 Year
  Sex: Female

DRUGS (3)
  1. METHYLPHENIDATE/METHYLPHENIDATE HYDROCHLORIDE [Suspect]
     Active Substance: METHYLPHENIDATE HYDROCHLORIDE
     Indication: NARCOLEPSY
     Dosage: ALSO RECEIVED ON 28-APR-2018, CUMULATIVE DOSE: 43 G
     Dates: start: 201505
  2. VENLAFAXINE/VENLAFAXINE HYDROCHLORIDE [Interacting]
     Active Substance: VENLAFAXINE HYDROCHLORIDE
     Indication: NARCOLEPSY
     Dates: start: 201505
  3. PITOLISANT [Interacting]
     Active Substance: PITOLISANT
     Indication: NARCOLEPSY
     Dates: start: 201709

REACTIONS (2)
  - Splenic infarction [Unknown]
  - Drug interaction [Unknown]
